FAERS Safety Report 25398667 (Version 1)
Quarter: 2025Q2

REPORT INFORMATION
  Report Type: Spontaneous
  Country: US (occurrence: US)
  Receive Date: 20250604
  Receipt Date: 20250604
  Transmission Date: 20250717
  Serious: No
  Sender: SANOFI AVENTIS
  Company Number: US-SA-2025SA159676

PATIENT
  Age: 13 Year
  Sex: Female

DRUGS (1)
  1. DUPIXENT [Suspect]
     Active Substance: DUPILUMAB
     Indication: Dermatitis atopic
     Dates: start: 202505

REACTIONS (5)
  - Pruritus [Recovered/Resolved]
  - Dermatitis atopic [Unknown]
  - Dry skin [Unknown]
  - Skin irritation [Unknown]
  - Dermatitis [Unknown]

NARRATIVE: CASE EVENT DATE: 20250101
